FAERS Safety Report 8029416-1 (Version None)
Quarter: 2012Q1

REPORT INFORMATION
  Report Type: 
  Country: None (occurrence: None)
  Receive Date: 20120106
  Receipt Date: 20111228
  Transmission Date: 20120608
  Serious: Yes (Hospitalization)
  Sender: FDA-Public Use
  Company Number: BR-ASTRAZENECA-2010SE55303

PATIENT
  Age: 35 Year
  Sex: Female
  Weight: 50 kg

DRUGS (10)
  1. ZOLADEX [Suspect]
     Indication: ENDOMETRIOSIS
     Route: 058
     Dates: start: 20040101, end: 20040101
  2. CLOMIPRAMIDA [Concomitant]
     Indication: PANIC DISORDER
     Route: 048
     Dates: start: 20070801, end: 20100701
  3. CLONAZEPAM [Concomitant]
     Indication: POST-TRAUMATIC STRESS DISORDER
     Route: 048
     Dates: start: 20070801, end: 20100701
  4. CLONAZEPAM [Concomitant]
     Route: 048
     Dates: start: 20100801
  5. CLOMIPRAMIDA [Concomitant]
     Indication: POST-TRAUMATIC STRESS DISORDER
     Route: 048
     Dates: start: 20070801, end: 20100701
  6. ATACAND HCT [Suspect]
     Indication: HYPERTENSION
     Dosage: 8/12.5 MG OD
     Route: 048
     Dates: start: 20101020
  7. CLOMIPRAMIDA [Concomitant]
     Route: 048
     Dates: start: 20100801
  8. CLOMIPRAMIDA [Concomitant]
     Route: 048
     Dates: start: 20100801
  9. CLONAZEPAM [Concomitant]
     Indication: PANIC DISORDER
     Route: 048
     Dates: start: 20070801, end: 20100701
  10. CLONAZEPAM [Concomitant]
     Route: 048
     Dates: start: 20100801

REACTIONS (5)
  - UTERINE ENLARGEMENT [None]
  - FACIAL PAIN [None]
  - ENDOMETRIOSIS [None]
  - THROAT IRRITATION [None]
  - BURNING SENSATION [None]
